FAERS Safety Report 7462662-4 (Version None)
Quarter: 2011Q2

REPORT INFORMATION
  Report Type: 
  Country: None (occurrence: None)
  Receive Date: 20110506
  Receipt Date: 20110503
  Transmission Date: 20111010
  Serious: Yes (Life-Threatening, Hospitalization, Other)
  Sender: FDA-Public Use
  Company Number: PHHY2009MX37211

PATIENT
  Age: 27 Year
  Sex: Female

DRUGS (4)
  1. RISPERDAL [Concomitant]
  2. TEGRETOL [Suspect]
     Indication: DECREASED APPETITE
     Route: 048
  3. RIVOTRIL [Concomitant]
  4. ACETAMINOPHEN [Concomitant]

REACTIONS (11)
  - COMA SCALE ABNORMAL [None]
  - SOMNOLENCE [None]
  - UNRESPONSIVE TO STIMULI [None]
  - ANALGESIC DRUG LEVEL INCREASED [None]
  - RESPIRATORY RATE DECREASED [None]
  - HEPATIC ENZYME INCREASED [None]
  - HEART RATE INCREASED [None]
  - SINUS BRADYCARDIA [None]
  - HAEMODYNAMIC INSTABILITY [None]
  - HYPOTENSION [None]
  - DRUG LEVEL INCREASED [None]
